FAERS Safety Report 5109875-4 (Version None)
Quarter: 2006Q3

REPORT INFORMATION
  Report Type: 
  Country: None (occurrence: None)
  Receive Date: 20060919
  Receipt Date: 20060919
  Transmission Date: 20061208
  Serious: Yes (Other)
  Sender: FDA-Public Use
  Company Number: None

PATIENT
  Age: 46 Year
  Sex: Male
  Weight: 116.1208 kg

DRUGS (8)
  1. ERBITUX [Suspect]
     Indication: NEOPLASM MALIGNANT
     Dosage: 400 MG/M2 = 920 MG IV
     Route: 042
     Dates: start: 20060605
  2. ATIVAN [Concomitant]
  3. COMPAZINE [Concomitant]
  4. NS [Concomitant]
  5. CISPLATIN [Concomitant]
  6. KYTRIL [Concomitant]
  7. DECADRON [Concomitant]
  8. BENADRYL [Concomitant]

REACTIONS (5)
  - BLOOD PRESSURE DECREASED [None]
  - CHILLS [None]
  - DRUG HYPERSENSITIVITY [None]
  - DYSPEPSIA [None]
  - SPUTUM ABNORMAL [None]
